FAERS Safety Report 21218345 (Version 1)
Quarter: 2022Q3

REPORT INFORMATION
  Report Type: Spontaneous
  Country: US (occurrence: US)
  Receive Date: 20220816
  Receipt Date: 20220816
  Transmission Date: 20221027
  Serious: No
  Sender: FDA-Public Use
  Company Number: US-ELI_LILLY_AND_COMPANY-US202208002498

PATIENT
  Age: 60 Year
  Sex: Male

DRUGS (1)
  1. MOUNJARO [Suspect]
     Active Substance: TIRZEPATIDE
     Indication: Diabetes mellitus
     Dosage: 10 MG, UNKNOWN
     Route: 058
     Dates: start: 20220722

REACTIONS (5)
  - Product prescribing error [Unknown]
  - Incorrect dose administered [Unknown]
  - Nausea [Unknown]
  - Injection site haemorrhage [Unknown]
  - Injection site pain [Unknown]

NARRATIVE: CASE EVENT DATE: 20220722
